FAERS Safety Report 5806968-0 (Version None)
Quarter: 2008Q3

REPORT INFORMATION
  Report Type: 
  Country: None (occurrence: None)
  Receive Date: 20080702
  Receipt Date: 20071219
  Transmission Date: 20090109
  Serious: Yes (Other)
  Sender: FDA-Public Use
  Company Number: PROG00207035555

PATIENT
  Age: 29 Year
  Sex: Female
  Weight: 90.5 kg

DRUGS (3)
  1. PROMETRIUM [Suspect]
     Indication: PRENATAL CARE
     Dosage: 200 MILLIGRAM(S) QD ORAL DAILY DOSE:  200 MILLIGRAM(S)
     Route: 048
     Dates: start: 20071102
  2. PROMETRIUM [Suspect]
     Indication: PROGESTERONE DECREASED
     Dosage: 200 MILLIGRAM(S) QD ORAL DAILY DOSE:  200 MILLIGRAM(S)
     Route: 048
     Dates: start: 20071102
  3. PRENATAL VITAMINS (PRENATAL VITAMINS) [Concomitant]

REACTIONS (1)
  - ABORTION SPONTANEOUS [None]
